FAERS Safety Report 24151599 (Version 1)
Quarter: 2024Q3

REPORT INFORMATION
  Report Type: Spontaneous
  Country: US (occurrence: US)
  Receive Date: 20240730
  Receipt Date: 20240730
  Transmission Date: 20241017
  Serious: No
  Sender: PERRIGO
  Company Number: US-PERRIGO-23US013636

PATIENT
  Age: 73 Year
  Sex: Female
  Weight: 88.889 kg

DRUGS (6)
  1. LORATADINE [Suspect]
     Active Substance: LORATADINE
     Indication: Ear pain
     Dosage: 10 MG, QD
     Route: 048
     Dates: start: 20231119, end: 20231126
  2. FLONASE [Suspect]
     Active Substance: FLUTICASONE PROPIONATE
     Indication: Ear pain
     Dosage: 2 SPRAYS IN EACH NOSTRIL, QD
     Route: 045
     Dates: start: 20231119, end: 20231119
  3. FLONASE [Suspect]
     Active Substance: FLUTICASONE PROPIONATE
     Dosage: 1 SPRAYS IN EACH NOSTRIL, QD
     Route: 045
     Dates: start: 20231120, end: 20231120
  4. MELATONIN [Concomitant]
     Active Substance: MELATONIN
     Indication: Insomnia
     Dosage: PRN
     Route: 065
     Dates: start: 2023
  5. DIPHENHYDRAMINE [Concomitant]
     Active Substance: DIPHENHYDRAMINE
     Indication: Insomnia
     Dosage: PRN
     Route: 065
     Dates: start: 20231025
  6. ZINC [Concomitant]
     Active Substance: ZINC
     Indication: Supplementation therapy
     Dosage: UNK
     Route: 065

REACTIONS (4)
  - Mouth swelling [Recovering/Resolving]
  - Swelling face [Recovering/Resolving]
  - Lacrimation increased [Recovering/Resolving]
  - Drug ineffective for unapproved indication [Unknown]

NARRATIVE: CASE EVENT DATE: 20231119
